FAERS Safety Report 19829336 (Version 1)
Quarter: 2021Q3

REPORT INFORMATION
  Report Type: Report from Study
  Country: AR (occurrence: AR)
  Receive Date: 20210914
  Receipt Date: 20210914
  Transmission Date: 20211014
  Serious: Yes (Other)
  Sender: FDA-Public Use
  Company Number: AR-EMD SERONO-9264451

PATIENT
  Sex: Female

DRUGS (4)
  1. MAVENCLAD [Suspect]
     Active Substance: CLADRIBINE
     Dosage: YEAR ONE MONTH TWO THERAPY: 1 TABLET DAILY FOR 5 DAYS
     Route: 048
     Dates: start: 20180514, end: 20180518
  2. MAVENCLAD [Suspect]
     Active Substance: CLADRIBINE
     Dosage: YEAR TWO MONTH ONE THERAPY: 1 TABLET DAILY FOR 5 DAYS
     Route: 048
     Dates: start: 20190416, end: 20190420
  3. MAVENCLAD [Suspect]
     Active Substance: CLADRIBINE
     Dosage: YEAR TWO MONTH ONE THERAPY: 1 TABLET DAILY FOR 5 DAYS
     Route: 048
     Dates: start: 20190514, end: 20190518
  4. MAVENCLAD [Suspect]
     Active Substance: CLADRIBINE
     Indication: MULTIPLE SCLEROSIS
     Dosage: YEAR ONE MONTH ONE THERAPY: 1 TABLET DAILY FOR 5 DAYS
     Route: 048
     Dates: start: 20180416, end: 20180420

REACTIONS (1)
  - Cholelithiasis [Recovering/Resolving]
